FAERS Safety Report 6674003-0 (Version None)
Quarter: 2010Q2

REPORT INFORMATION
  Report Type: 
  Country: None (occurrence: None)
  Receive Date: 20100409
  Receipt Date: 20100329
  Transmission Date: 20101027
  Serious: Yes (Other)
  Sender: FDA-Public Use
  Company Number: US-JNJFOC-20090802942

PATIENT
  Sex: Male

DRUGS (3)
  1. LEVAQUIN [Suspect]
     Indication: BRONCHITIS
     Route: 065
  2. LEVAQUIN [Suspect]
     Indication: SINUSITIS
     Route: 065
  3. STEROIDS NOS [Suspect]
     Indication: PAIN
     Route: 065

REACTIONS (3)
  - CONNECTIVE TISSUE DISORDER [None]
  - TENDON RUPTURE [None]
  - TENOSYNOVITIS [None]
